FAERS Safety Report 4840812-3 (Version None)
Quarter: 2005Q4

REPORT INFORMATION
  Report Type: 
  Country: None (occurrence: None)
  Receive Date: 20051130
  Receipt Date: 20050216
  Transmission Date: 20060501
  Serious: No
  Sender: FDA-Public Use
  Company Number: US-BRISTOL-MYERS SQUIBB COMPANY-12866745

PATIENT
  Age: 67 Year
  Sex: Male

DRUGS (5)
  1. AVALIDE [Suspect]
     Indication: HYPERTENSION
     Route: 048
     Dates: start: 20040201, end: 20041201
  2. NORCO [Suspect]
     Indication: FIBROMYALGIA
     Dosage: 10 MG / 325 MG 8 TABS PER DAY PRN
     Route: 048
     Dates: start: 20010101
  3. LOTREL [Concomitant]
     Dates: start: 20041101
  4. MORPHINE SULFATE [Concomitant]
     Dates: start: 20020201
  5. ATACAND [Concomitant]
     Dosage: 32/12
     Dates: start: 20040501

REACTIONS (1)
  - GASTROOESOPHAGEAL REFLUX DISEASE [None]
